FAERS Safety Report 9229962 (Version 1)
Quarter: 2013Q1

REPORT INFORMATION
  Report Type: Spontaneous
  Country: US (occurrence: None)
  Receive Date: 20121022
  Receipt Date: 20121022
  Transmission Date: 20140127
  Serious: Yes (Hospitalization)
  Sender: FDA-Public Use
  Company Number: 2010S1000370

PATIENT
  Age: 14 Year
  Sex: Female

DRUGS (3)
  1. DARVOCET-N [Suspect]
     Route: 048
  2. CLARAVIS [Suspect]
  3. AMNESTEEM [Suspect]

REACTIONS (1)
  - Overdose [None]
